FAERS Safety Report 8218157-3 (Version None)
Quarter: 2012Q1

REPORT INFORMATION
  Report Type: 
  Country: None (occurrence: None)
  Receive Date: 20120319
  Receipt Date: 20120312
  Transmission Date: 20120608
  Serious: Yes (Hospitalization, Other)
  Sender: FDA-Public Use
  Company Number: PR-ABBOTT-12P-131-0904353-00

PATIENT
  Sex: Female
  Weight: 112.14 kg

DRUGS (7)
  1. METFORMIN HYDROCHLORIDE [Concomitant]
     Indication: TYPE 2 DIABETES MELLITUS
     Route: 048
     Dates: start: 20060101
  2. HUMIRA [Suspect]
     Indication: PSORIATIC ARTHROPATHY
     Route: 058
     Dates: start: 20100101, end: 20120113
  3. ALTACE [Concomitant]
     Indication: HYPERTENSION
     Route: 048
     Dates: start: 20060101
  4. LIPITOR [Concomitant]
     Indication: BLOOD CHOLESTEROL INCREASED
     Route: 048
     Dates: start: 20060101
  5. METHOTREXATE [Concomitant]
     Dosage: 5MG ON THURSDAYS
     Route: 048
  6. HUMIRA [Suspect]
     Route: 058
     Dates: start: 20120302
  7. METHOTREXATE [Concomitant]
     Indication: PSORIATIC ARTHROPATHY
     Dosage: 7.5MG ON WEDNESDAYS
     Route: 048

REACTIONS (6)
  - OVARIAN CANCER [None]
  - HAEMOGLOBIN DECREASED [None]
  - ANAEMIA [None]
  - BLOOD GLUCOSE INCREASED [None]
  - ENDOMETRIAL CANCER [None]
  - CHOLELITHIASIS [None]
